FAERS Safety Report 4579802-7 (Version None)
Quarter: 2005Q1

REPORT INFORMATION
  Report Type: 
  Country: None (occurrence: None)
  Receive Date: 20050210
  Receipt Date: 20050201
  Transmission Date: 20050727
  Serious: Yes (Hospitalization)
  Sender: FDA-Public Use
  Company Number: 2004099975

PATIENT
  Age: 60 Year
  Sex: Female
  Weight: 56 kg

DRUGS (3)
  1. LYRICA [Suspect]
     Indication: POST HERPETIC NEURALGIA
     Dosage: 75 MG ORAL
     Route: 048
     Dates: start: 20041025, end: 20041026
  2. VALORON N RETARD (NALOXOINE, TILIDINE) [Concomitant]
  3. ALL OTHER THERAPEUTIC PRODUCTS [Concomitant]

REACTIONS (13)
  - AGITATION [None]
  - CAROTID ARTERY STENOSIS [None]
  - COORDINATION ABNORMAL [None]
  - CSF CELL COUNT INCREASED [None]
  - DYSTONIA [None]
  - ENCEPHALITIS [None]
  - FACIAL PARESIS [None]
  - GAIT DISTURBANCE [None]
  - HYPERKINESIA [None]
  - MYOCLONUS [None]
  - NERVOUS SYSTEM DISORDER [None]
  - RESTLESSNESS [None]
  - SPEECH DISORDER [None]
